FAERS Safety Report 11313356 (Version 1)
Quarter: 2015Q3

REPORT INFORMATION
  Report Type: Spontaneous
  Country: CH (occurrence: CH)
  Receive Date: 20150727
  Receipt Date: 20150727
  Transmission Date: 20151125
  Serious: Yes (Hospitalization)
  Sender: FDA-Public Use
  Company Number: CH-TEVA-581584ISR

PATIENT
  Age: 57 Year
  Sex: Female

DRUGS (15)
  1. CELEBREX [Suspect]
     Active Substance: CELECOXIB
     Dosage: DOSE 100 MG, IN 2012/2013 INTERMITTENTLY
     Route: 065
     Dates: start: 2012
  2. XYZAL [Suspect]
     Active Substance: LEVOCETIRIZINE DIHYDROCHLORIDE
     Dosage: 15 MILLIGRAM DAILY; STRENGTH 5 MG, 0-0-1-2
     Route: 065
     Dates: start: 201303
  3. SIBROVITA [Concomitant]
     Dosage: PREVIOUS NAME FOR GELODURAT
     Route: 065
     Dates: start: 2010, end: 2012
  4. CEFUROXIM [Suspect]
     Active Substance: CEFUROXIME
     Dosage: 1000 MILLIGRAM DAILY; 1-0-1
     Route: 065
     Dates: start: 201503
  5. IRFEN-800 RETARDTABLETTEN [Suspect]
     Active Substance: IBUPROFEN
     Dosage: 1600 MILLIGRAM DAILY; 1-0-0-1
     Route: 065
     Dates: start: 201408
  6. PANTOPRAZOL 20 MG [Suspect]
     Active Substance: PANTOPRAZOLE SODIUM
     Dosage: 20 MILLIGRAM DAILY; 1-0-0
     Route: 065
     Dates: start: 201408
  7. CONDROSULF [Concomitant]
     Active Substance: CHONDROITIN SULFATE (CHICKEN)
     Dosage: 800 MILLIGRAM DAILY; 1-0-0
     Route: 065
     Dates: start: 2013
  8. TOSSAMIN [Concomitant]
     Route: 065
     Dates: start: 201503
  9. BEXIN [Concomitant]
     Active Substance: DEXTROMETHORPHAN HYDROBROMIDE
     Route: 065
     Dates: start: 201503
  10. PARACETAMOL [Concomitant]
     Active Substance: ACETAMINOPHEN
     Dosage: DOSE 1 G
     Route: 065
     Dates: start: 2012
  11. MAGNESIUM 300 MG BEUTEL [Concomitant]
     Dosage: 300 MILLIGRAM DAILY; 0-0-0-1
     Route: 065
     Dates: start: 2010
  12. ECHINACIN [Suspect]
     Active Substance: ECHINACIN
     Dosage: TAKEN FOR YEARS, AS NEEDED
     Route: 065
  13. GELODURAT [Concomitant]
     Dosage: 3 DOSAGE FORMS DAILY; 1-1-1
     Route: 065
     Dates: start: 2013
  14. KALOBA [Concomitant]
     Dosage: DOSE 50 MG
     Route: 065
     Dates: start: 2012
  15. SINUPRET FORTE [Concomitant]
     Route: 065
     Dates: start: 2012, end: 2014

REACTIONS (1)
  - Drug-induced liver injury [Recovering/Resolving]

NARRATIVE: CASE EVENT DATE: 2015
